FAERS Safety Report 5224920-3 (Version None)
Quarter: 2007Q1

REPORT INFORMATION
  Report Type: 
  Country: None (occurrence: None)
  Receive Date: 20070126
  Receipt Date: 20070117
  Transmission Date: 20070707
  Serious: Yes (Death)
  Sender: FDA-Public Use
  Company Number: B0455211A

PATIENT
  Age: 62 Year
  Sex: 0

DRUGS (1)
  1. LITHIUM CARBONATE [Suspect]

REACTIONS (1)
  - DRUG TOXICITY [None]
